FAERS Safety Report 15686575 (Version 1)
Quarter: 2018Q4

REPORT INFORMATION
  Report Type: Report from Study
  Country: GB (occurrence: GB)
  Receive Date: 20181204
  Receipt Date: 20181204
  Transmission Date: 20190205
  Serious: Yes (Other)
  Sender: FDA-Public Use
  Company Number: GB-JNJFOC-20181141565

PATIENT
  Age: 47 Year
  Sex: Male

DRUGS (3)
  1. AZATHIOPRINE. [Concomitant]
     Active Substance: AZATHIOPRINE
     Route: 065
  2. QUESTRAN [Concomitant]
     Active Substance: CHOLESTYRAMINE
     Route: 065
  3. STELARA [Suspect]
     Active Substance: USTEKINUMAB
     Indication: CROHN^S DISEASE
     Dosage: 8 WEEKS AFTER INDUCTION AS DIRECTED
     Route: 058
     Dates: start: 2018

REACTIONS (2)
  - Inappropriate schedule of product administration [Unknown]
  - Intestinal resection [Unknown]

NARRATIVE: CASE EVENT DATE: 2018
